FAERS Safety Report 4471333-8 (Version None)
Quarter: 2004Q4

REPORT INFORMATION
  Report Type: 
  Country: None (occurrence: None)
  Receive Date: 20041006
  Receipt Date: 20040916
  Transmission Date: 20050328
  Serious: Yes (Other)
  Sender: FDA-Public Use
  Company Number: M2004-1282

PATIENT
  Age: 66 Year
  Sex: Male

DRUGS (6)
  1. RIMACTANE [Suspect]
     Indication: PNEUMONIA LEGIONELLA
     Dates: start: 20010101, end: 20011205
  2. MEROPENEM TRIHYDRATE [Suspect]
     Indication: PNEUMONIA LEGIONELLA
     Dates: start: 20011128, end: 20011205
  3. ERYTHROMYCIN [Suspect]
     Indication: PNEUMONIA LEGIONELLA
     Dates: start: 20011128, end: 20011205
  4. IMMUNE GLOBULIN INTRAVENOUS (HUMAN) [Concomitant]
  5. FLUCONAZOLE [Concomitant]
  6. METHYLPREDNISOLONE [Concomitant]

REACTIONS (4)
  - CHOLESTASIS [None]
  - HEPATIC FAILURE [None]
  - INTERSTITIAL LUNG DISEASE [None]
  - RESPIRATORY FAILURE [None]
